FAERS Safety Report 18100452 (Version 1)
Quarter: 2020Q3

REPORT INFORMATION
  Report Type: Spontaneous
  Country: BR (occurrence: BR)
  Receive Date: 20200731
  Receipt Date: 20200731
  Transmission Date: 20201103
  Serious: Yes (Hospitalization)
  Sender: FDA-Public Use
  Company Number: BR-ALLERGAN-2027187US

PATIENT
  Sex: Female

DRUGS (1)
  1. FRESH CLEAR [Suspect]
     Active Substance: PHENYLEPHRINE HYDROCHLORIDE
     Indication: OCULAR HYPERAEMIA
     Dosage: 1 DROP IN EACH EYE
     Route: 047

REACTIONS (2)
  - COVID-19 [Recovered/Resolved]
  - Prescription drug used without a prescription [Unknown]

NARRATIVE: CASE EVENT DATE: 202005
